FAERS Safety Report 17975340 (Version 4)
Quarter: 2021Q1

REPORT INFORMATION
  Report Type: Report from Study
  Country: CA (occurrence: CA)
  Receive Date: 20200702
  Receipt Date: 20210329
  Transmission Date: 20210419
  Serious: Yes (Hospitalization)
  Sender: FDA-Public Use
  Company Number: CA-TOLMAR, INC.-20CA021745

PATIENT
  Age: 75 Year
  Sex: Male

DRUGS (5)
  1. ELIGARD [Suspect]
     Active Substance: LEUPROLIDE ACETATE
     Indication: PROSTATE CANCER
     Dosage: 22.5 MG, Q 3 MONTH
     Route: 058
     Dates: start: 20200328
  2. ELIGARD [Suspect]
     Active Substance: LEUPROLIDE ACETATE
     Dosage: 22.5 MG, Q 3 MONTH
     Route: 058
     Dates: start: 20190825
  3. ELIGARD [Suspect]
     Active Substance: LEUPROLIDE ACETATE
     Dosage: 22.5 MG, Q 3 MONTH
     Route: 058
     Dates: start: 20201219
  4. ELIGARD [Suspect]
     Active Substance: LEUPROLIDE ACETATE
     Dosage: 22.5 MG, Q 3 MONTH
     Route: 058
     Dates: start: 20200924
  5. ELIGARD [Suspect]
     Active Substance: LEUPROLIDE ACETATE
     Dosage: 22.5 MG, Q 3 MONTH
     Route: 058
     Dates: start: 20210313

REACTIONS (4)
  - Injection site pain [Recovered/Resolved]
  - Myocardial infarction [Unknown]
  - Hot flush [Not Recovered/Not Resolved]
  - Fatigue [Not Recovered/Not Resolved]

NARRATIVE: CASE EVENT DATE: 20200615
